FAERS Safety Report 14933588 (Version 1)
Quarter: 2018Q2

REPORT INFORMATION
  Report Type: Spontaneous
  Country: US (occurrence: US)
  Receive Date: 20180524
  Receipt Date: 20180524
  Transmission Date: 20180720
  Serious: No
  Sender: FDA-Public Use
  Company Number: US-MIKART, INC.-2048398

PATIENT
  Sex: Female

DRUGS (1)
  1. CHLORZOXAZONE. [Suspect]
     Active Substance: CHLORZOXAZONE
     Route: 048
     Dates: start: 201710

REACTIONS (5)
  - Faeces discoloured [Unknown]
  - Crystal urine [Unknown]
  - Chromaturia [Unknown]
  - Protein urine [Unknown]
  - Constipation [Unknown]
